FAERS Safety Report 18666496 (Version 2)
Quarter: 2021Q1

REPORT INFORMATION
  Report Type: Spontaneous
  Country: JP (occurrence: JP)
  Receive Date: 20201227
  Receipt Date: 20210301
  Transmission Date: 20210419
  Serious: Yes (Other)
  Sender: FDA-Public Use
  Company Number: NVSJ2020JP014181

PATIENT
  Age: 59 Year
  Sex: Male

DRUGS (6)
  1. RED BLOOD CELLS, CONCENTRATED [Concomitant]
     Active Substance: HUMAN RED BLOOD CELL
     Indication: PRODUCT USED FOR UNKNOWN INDICATION
     Dosage: UNK
     Route: 065
  2. PLATELETS [Concomitant]
     Active Substance: HUMAN PLATELET, ALLOGENIC
     Indication: PRODUCT USED FOR UNKNOWN INDICATION
     Dosage: UNK
     Route: 065
  3. REVOLADE TAB [Suspect]
     Active Substance: ELTROMBOPAG OLAMINE
     Indication: APLASTIC ANAEMIA
     Dosage: 12.5 MG
     Route: 048
  4. DEFERASIROX. [Suspect]
     Active Substance: DEFERASIROX
     Indication: PRODUCT USED FOR UNKNOWN INDICATION
     Dosage: UNK
     Route: 065
  5. NEORAL [Suspect]
     Active Substance: CYCLOSPORINE
     Indication: APLASTIC ANAEMIA
     Dosage: 200 MG
     Route: 048
  6. REVOLADE TAB [Suspect]
     Active Substance: ELTROMBOPAG OLAMINE
     Dosage: 100 MG
     Route: 048

REACTIONS (9)
  - Therapeutic response decreased [Unknown]
  - Diabetes mellitus [Unknown]
  - Diabetic retinopathy [Unknown]
  - Tumour marker abnormal [Unknown]
  - Hypercalcaemia [Recovered/Resolved]
  - Psoriasis [Unknown]
  - Meningioma [Unknown]
  - Faeces discoloured [Recovered/Resolved]
  - Supraventricular tachycardia [Unknown]
